FAERS Safety Report 14561632 (Version 2)
Quarter: 2018Q1

REPORT INFORMATION
  Report Type: Spontaneous
  Country: CL (occurrence: CL)
  Receive Date: 20180222
  Receipt Date: 20180222
  Transmission Date: 20180509
  Serious: Yes (Death, Hospitalization)
  Sender: FDA-Public Use
  Company Number: PHHY2018CL026746

PATIENT
  Age: 38 Year
  Sex: Male

DRUGS (8)
  1. PREDNISONE. [Concomitant]
     Active Substance: PREDNISONE
     Indication: PRODUCT USED FOR UNKNOWN INDICATION
     Dosage: 5 MG, QD
     Route: 065
  2. LOSARTAN. [Concomitant]
     Active Substance: LOSARTAN
     Indication: PRODUCT USED FOR UNKNOWN INDICATION
     Dosage: 50 MG, QD
     Route: 065
  3. EVEROLIMUS. [Suspect]
     Active Substance: EVEROLIMUS
     Indication: PRODUCT USED FOR UNKNOWN INDICATION
     Dosage: 1.5 OT, Q12H
     Route: 065
  4. TACROLIMUS. [Suspect]
     Active Substance: TACROLIMUS
     Indication: PRODUCT USED FOR UNKNOWN INDICATION
     Dosage: 0.5 OT, Q12H
     Route: 065
  5. RANITIDINE. [Concomitant]
     Active Substance: RANITIDINE
     Indication: PRODUCT USED FOR UNKNOWN INDICATION
     Dosage: 300 MG, Q8H
     Route: 065
  6. ATENOLOL. [Concomitant]
     Active Substance: ATENOLOL
     Indication: PRODUCT USED FOR UNKNOWN INDICATION
     Dosage: 50 MG, QD
     Route: 065
  7. ATORVASTATIN [Concomitant]
     Active Substance: ATORVASTATIN
     Indication: PRODUCT USED FOR UNKNOWN INDICATION
     Dosage: 20 MG, QD
     Route: 065
  8. PAROXETINE. [Concomitant]
     Active Substance: PAROXETINE
     Indication: PRODUCT USED FOR UNKNOWN INDICATION
     Dosage: 25 MG, QD
     Route: 065

REACTIONS (22)
  - Acute respiratory failure [Fatal]
  - Acute respiratory distress syndrome [Fatal]
  - Gastric haemorrhage [Unknown]
  - Dehydration [Unknown]
  - Deep vein thrombosis [Unknown]
  - Ileus paralytic [Unknown]
  - Anaemia [Unknown]
  - Diarrhoea [Unknown]
  - Haematoma [Unknown]
  - Respiratory failure [Fatal]
  - Azotaemia [Unknown]
  - Pneumonia klebsiella [Unknown]
  - Complications of transplanted kidney [Unknown]
  - Pneumonia [Unknown]
  - Dysphagia [Unknown]
  - Fluid retention [Unknown]
  - Sepsis [Unknown]
  - Vomiting [Unknown]
  - Urinary tract infection [Unknown]
  - Aspiration [Unknown]
  - Cervix haematoma uterine [Unknown]
  - Interstitial lung disease [Unknown]
